FAERS Safety Report 9281149 (Version 1)
Quarter: 2013Q2

REPORT INFORMATION
  Report Type: Report from Study
  Country: US (occurrence: US)
  Receive Date: 20130509
  Receipt Date: 20130509
  Transmission Date: 20140414
  Serious: Yes (Hospitalization)
  Sender: FDA-Public Use
  Company Number: US-ABBOTT-13P-163-1084778-00

PATIENT
  Age: 57 Year
  Sex: Male

DRUGS (10)
  1. HUMIRA [Suspect]
     Indication: RHEUMATOID ARTHRITIS
  2. METHOTREXATE [Concomitant]
     Indication: RHEUMATOID ARTHRITIS
     Dosage: 3 TABLETS FOR 3 DAYS AND THEN 1 TABLET FOR 1 DAY
  3. FOLIC ACID [Concomitant]
     Indication: RHEUMATOID ARTHRITIS
     Route: 048
  4. AMLODIPINE DENAZTRIL [Concomitant]
     Indication: BLOOD PRESSURE ABNORMAL
     Dosage: 5/10MG DAILY
     Route: 048
  5. GENERIC LIPITOR [Concomitant]
     Indication: BLOOD CHOLESTEROL ABNORMAL
     Route: 048
  6. MELOXICAM [Concomitant]
     Indication: RHEUMATOID ARTHRITIS
     Route: 048
  7. OMEPRAZOLE [Concomitant]
     Indication: DYSPEPSIA
     Route: 048
  8. DONEKEZIL [Concomitant]
     Indication: FAMILIAL RISK FACTOR
     Route: 048
  9. DONEKEZIL [Concomitant]
     Indication: MEMORY IMPAIRMENT
  10. OXYCODONE [Concomitant]
     Indication: PAIN
     Dosage: 10/325 MG 1-2 EVERY 6 HOURS
     Route: 048

REACTIONS (2)
  - Cerebrovascular accident [Recovered/Resolved]
  - Memory impairment [Unknown]
